FAERS Safety Report 6896781-8 (Version None)
Quarter: 2010Q3

REPORT INFORMATION
  Report Type: 
  Country: None (occurrence: None)
  Receive Date: 20100802
  Receipt Date: 20070308
  Transmission Date: 20110219
  Serious: Yes (Other)
  Sender: FDA-Public Use
  Company Number: US-PFIZER INC-2007006945

PATIENT
  Sex: Male
  Weight: 99.8 kg

DRUGS (2)
  1. LYRICA [Suspect]
     Indication: NEURALGIA
     Dosage: TID: EVERY DAY
  2. ULTRAM [Concomitant]

REACTIONS (4)
  - BURNING SENSATION [None]
  - FACE OEDEMA [None]
  - VISION BLURRED [None]
  - VISUAL FIELD DEFECT [None]
